FAERS Safety Report 6679192-X (Version None)
Quarter: 2010Q2

REPORT INFORMATION
  Report Type: 
  Country: None (occurrence: None)
  Receive Date: 20100409
  Receipt Date: 20100330
  Transmission Date: 20101027
  Serious: Yes (Hospitalization)
  Sender: FDA-Public Use
  Company Number: 553128

PATIENT
  Age: 76 Year
  Sex: Male

DRUGS (10)
  1. CYTARABINE [Suspect]
     Indication: ACUTE MYELOID LEUKAEMIA
     Dosage: 30 MG, 1 DAY, SUBCUTANEOUS ; 30 MG, 1 DAY, SUBCUTANEOUS
     Route: 058
     Dates: start: 20080527, end: 20080605
  2. CYTARABINE [Suspect]
     Indication: ACUTE MYELOID LEUKAEMIA
     Dosage: 30 MG, 1 DAY, SUBCUTANEOUS ; 30 MG, 1 DAY, SUBCUTANEOUS
     Route: 058
     Dates: start: 20080624
  3. (MAGNESIUM OXIDE) [Concomitant]
  4. ALLOPURINOL [Concomitant]
  5. ATIVAN [Concomitant]
  6. HYTRIN [Concomitant]
  7. (TAKEPRON) [Concomitant]
  8. NYSTATIN [Concomitant]
  9. NERISONE [Concomitant]
  10. SENOKOT [Concomitant]

REACTIONS (2)
  - HYPOTENSION [None]
  - SEPSIS [None]
